FAERS Safety Report 16927207 (Version 3)
Quarter: 2020Q3

REPORT INFORMATION
  Report Type: Spontaneous
  Country: PT (occurrence: PT)
  Receive Date: 20191016
  Receipt Date: 20200710
  Transmission Date: 20201102
  Serious: Yes (Hospitalization, Other)
  Sender: FDA-Public Use
  Company Number: NVSC2019PT003830

PATIENT
  Age: 68 Year
  Sex: Male

DRUGS (6)
  1. TRIPTORELIN [Concomitant]
     Active Substance: TRIPTORELIN
     Indication: PROSTATIC ADENOMA
     Dosage: UNK
     Route: 065
  2. CYPROTERONE ACETATE [Concomitant]
     Active Substance: CYPROTERONE ACETATE
     Indication: PROSTATIC ADENOMA
     Dosage: UNK
     Route: 065
     Dates: start: 201502
  3. ZOLEDRONIC ACID [Suspect]
     Active Substance: ZOLEDRONIC ACID
     Indication: PROSTATIC ADENOMA
     Dosage: ADMINISTRATION FOR 15 MINUTES
     Route: 042
     Dates: start: 201502
  4. ZOLEDRONIC ACID [Suspect]
     Active Substance: ZOLEDRONIC ACID
     Indication: METASTASES TO BONE
  5. CYPROTERONE ACETATE [Concomitant]
     Active Substance: CYPROTERONE ACETATE
     Indication: METASTASES TO BONE
  6. TRIPTORELIN [Concomitant]
     Active Substance: TRIPTORELIN
     Indication: METASTASES TO BONE

REACTIONS (29)
  - Renal injury [Unknown]
  - Anaemia [Unknown]
  - Hypokalaemia [Unknown]
  - Diabetic nephropathy [Unknown]
  - Acute kidney injury [Recovering/Resolving]
  - Fanconi syndrome [Recovered/Resolved]
  - Hypertensive nephropathy [Unknown]
  - Hypercreatininaemia [Recovering/Resolving]
  - Hypouricaemia [Recovered/Resolved]
  - Decreased appetite [Recovered/Resolved]
  - Vitamin B12 deficiency [Recovered/Resolved]
  - Renal tubular necrosis [Recovering/Resolving]
  - Normocytic anaemia [Recovered/Resolved]
  - Fanconi syndrome acquired [Recovering/Resolving]
  - Renal tubular acidosis [Recovering/Resolving]
  - Acidosis hyperchloraemic [Recovered/Resolved]
  - Hypokalaemia [Recovered/Resolved]
  - Hypocalcaemia [Recovered/Resolved]
  - Hyperuricosuria [Recovered/Resolved]
  - Hyperphosphaturia [Recovered/Resolved]
  - Nephropathy toxic [Recovering/Resolving]
  - Asthenia [Recovered/Resolved]
  - Hypophosphataemia [Recovered/Resolved]
  - Hypomagnesaemia [Recovered/Resolved]
  - Proteinuria [Recovered/Resolved]
  - Hyperkaliuria [Recovered/Resolved]
  - Renal tubular dysfunction [Recovered/Resolved]
  - Metabolic acidosis [Recovered/Resolved]
  - Hypercalciuria [Recovered/Resolved]

NARRATIVE: CASE EVENT DATE: 201604
